FAERS Safety Report 14655637 (Version 2)
Quarter: 2018Q1

REPORT INFORMATION
  Report Type: Spontaneous
  Country: IT (occurrence: IT)
  Receive Date: 20180319
  Receipt Date: 20180322
  Transmission Date: 20180509
  Serious: Yes (Other)
  Sender: FDA-Public Use
  Company Number: IT-TEVA-2018-IT-868801

PATIENT
  Age: 5 Decade
  Sex: Female

DRUGS (8)
  1. FLUOROURACIL. [Suspect]
     Active Substance: FLUOROURACIL
     Indication: SMALL INTESTINE ADENOCARCINOMA
     Route: 065
  2. CAPECITABINE. [Suspect]
     Active Substance: CAPECITABINE
     Indication: SMALL INTESTINE ADENOCARCINOMA
     Dosage: 625MG/MQ TWICE DAILY; CONTINUOUSLY
     Route: 065
  3. FOLINIC ACID [Suspect]
     Active Substance: LEUCOVORIN
     Indication: SMALL INTESTINE ADENOCARCINOMA
     Route: 065
  4. PANITUMUMAB [Suspect]
     Active Substance: PANITUMUMAB
     Indication: SMALL INTESTINE ADENOCARCINOMA
     Dosage: DOSE REDUCED TO 80% OF THE FULL DOSE
     Route: 065
  5. BEVACIZUMAB. [Concomitant]
     Active Substance: BEVACIZUMAB
     Indication: SMALL INTESTINE ADENOCARCINOMA
     Route: 065
     Dates: end: 201208
  6. FOLINIC ACID [Suspect]
     Active Substance: LEUCOVORIN
     Indication: SMALL INTESTINE ADENOCARCINOMA
     Route: 065
  7. FLUOROURACIL. [Suspect]
     Active Substance: FLUOROURACIL
     Indication: SMALL INTESTINE ADENOCARCINOMA
     Dosage: FIRST-LINE CHEMOTHERAPY
     Route: 065
  8. OXALIPLATIN. [Suspect]
     Active Substance: OXALIPLATIN
     Indication: SMALL INTESTINE ADENOCARCINOMA
     Dosage: FIRST-LINE CHEMOTHERAPY
     Route: 065

REACTIONS (6)
  - Rash follicular [Unknown]
  - Nausea [Unknown]
  - Rash [Unknown]
  - Mucosal inflammation [Unknown]
  - Gastrointestinal toxicity [Unknown]
  - Hypertension [Unknown]
